FAERS Safety Report 4678127-9 (Version None)
Quarter: 2005Q2

REPORT INFORMATION
  Report Type: 
  Country: None (occurrence: None)
  Receive Date: 20050601
  Receipt Date: 20050517
  Transmission Date: 20051028
  Serious: Yes (Hospitalization)
  Sender: FDA-Public Use
  Company Number: GB-BOEHRINGER INGELHEIM PHARMACEUTICALS, INC.-2005-UK-00847UK

PATIENT
  Age: 89 Year
  Sex: Male

DRUGS (5)
  1. DIPYRIDAMOLE [Suspect]
     Dosage: 200MG TWICE DAILY
     Route: 048
  2. ASPIRIN [Suspect]
     Indication: CEREBROVASCULAR ACCIDENT PROPHYLAXIS
     Route: 048
     Dates: end: 20041203
  3. LOSARTAN [Concomitant]
     Indication: HYPERTENSION
     Route: 048
  4. FRUSEMIDE [Concomitant]
     Indication: PULMONARY OEDEMA
     Route: 048
  5. DIGOXIN [Concomitant]
     Indication: ATRIAL FIBRILLATION
     Route: 048

REACTIONS (1)
  - HAEMATEMESIS [None]
